FAERS Safety Report 10155770 (Version 1)
Quarter: 2014Q2

REPORT INFORMATION
  Report Type: Spontaneous
  Country: US (occurrence: US)
  Receive Date: 20140506
  Receipt Date: 20140506
  Transmission Date: 20141212
  Serious: No
  Sender: FDA-Public Use
  Company Number: US-009507513-1405USA002912

PATIENT
  Sex: Male

DRUGS (1)
  1. CLARITIN CHEWABLE TABLETS [Suspect]
     Indication: HYPERSENSITIVITY
     Dosage: 2 DF, UNKNOWN
     Route: 048
     Dates: start: 20140430

REACTIONS (5)
  - Wheezing [Recovering/Resolving]
  - Drug effect incomplete [Unknown]
  - Sinus congestion [Unknown]
  - Cough [Unknown]
  - Ocular hyperaemia [Unknown]
